FAERS Safety Report 5075757-X (Version None)
Quarter: 2006Q3

REPORT INFORMATION
  Report Type: 
  Country: None (occurrence: None)
  Receive Date: 20060807
  Receipt Date: 20060725
  Transmission Date: 20061208
  Serious: Yes (Other)
  Sender: FDA-Public Use
  Company Number: 2006092752

PATIENT
  Age: 61 Year
  Sex: Female

DRUGS (7)
  1. BEXTRA [Suspect]
     Indication: PAIN
  2. ZOLOFT [Suspect]
     Indication: DEPRESSION
     Dosage: 25 MG (25 MG, 1 IN 1 D)
  3. CELEBREX [Suspect]
     Indication: PAIN
     Dosage: 200 MG (100 MG, 2 IN 1 D)
     Dates: start: 20050101
  4. LYRICA [Suspect]
     Indication: TRIGEMINAL NEURALGIA
     Dosage: 300 MG (150 MG, 2 IN 1 D)
     Dates: start: 20060601
  5. TEGRETOL [Suspect]
     Indication: TRIGEMINAL NEURALGIA
     Dates: start: 20060101
  6. THYROID TAB [Concomitant]
  7. FOSAMAX [Concomitant]

REACTIONS (15)
  - BALANCE DISORDER [None]
  - CONDITION AGGRAVATED [None]
  - CONFUSIONAL STATE [None]
  - CONTUSION [None]
  - DIZZINESS [None]
  - ENDODONTIC PROCEDURE [None]
  - HOT FLUSH [None]
  - HUNGER [None]
  - MALAISE [None]
  - MEMORY IMPAIRMENT [None]
  - PAIN [None]
  - PAIN IN EXTREMITY [None]
  - TREATMENT NONCOMPLIANCE [None]
  - TRIGEMINAL NEURALGIA [None]
  - WEIGHT INCREASED [None]
